FAERS Safety Report 8380997-8 (Version None)
Quarter: 2012Q2

REPORT INFORMATION
  Report Type: 
  Country: None (occurrence: None)
  Receive Date: 20120515
  Receipt Date: 20120509
  Transmission Date: 20120825
  Serious: Yes (Hospitalization)
  Sender: FDA-Public Use
  Company Number: 2012032263

PATIENT
  Age: 60 Year
  Sex: Male

DRUGS (5)
  1. PANTOPRAZOLE [Concomitant]
  2. METOPROLOL TARTRATE [Concomitant]
  3. PRIVIGEN [Suspect]
     Indication: SECONDARY IMMUNODEFICIENCY
     Dosage: 20 G, INFUSION RATE 1.1 - 2.0 ML/MIN, INTRAVENOUS (NOT OTHERWISE SPECIFIED)
     Route: 042
     Dates: start: 20120329, end: 20120329
  4. PRIVIGEN [Suspect]
     Indication: CHRONIC LYMPHOCYTIC LEUKAEMIA
     Dosage: 20 G, INFUSION RATE 1.1 - 2.0 ML/MIN, INTRAVENOUS (NOT OTHERWISE SPECIFIED)
     Route: 042
     Dates: start: 20120329, end: 20120329
  5. ALLOOPURINOL [Concomitant]

REACTIONS (4)
  - RESPIRATORY FAILURE [None]
  - DYSPNOEA [None]
  - UNEVALUABLE EVENT [None]
  - RENAL FAILURE [None]
